FAERS Safety Report 7612237-9 (Version None)
Quarter: 2011Q3

REPORT INFORMATION
  Report Type: 
  Country: None (occurrence: None)
  Receive Date: 20110715
  Receipt Date: 20110630
  Transmission Date: 20111222
  Serious: Yes (Other)
  Sender: FDA-Public Use
  Company Number: PHHY2011US58645

PATIENT
  Sex: Female

DRUGS (4)
  1. SINGULAIR [Concomitant]
  2. PROAIR (FLUTICASONE PROPIONATE) [Concomitant]
  3. EXFORGE [Suspect]
     Dosage: 1 DF, QD (320 MG VALS AND UNKNOWN MG OF AMLO)
     Dates: start: 20090201
  4. ADVAIR DISKUS 100/50 [Concomitant]

REACTIONS (3)
  - FLUID RETENTION [None]
  - DYSPNOEA [None]
  - ASTHMA [None]
